FAERS Safety Report 4784051-3 (Version None)
Quarter: 2005Q3

REPORT INFORMATION
  Report Type: 
  Country: None (occurrence: None)
  Receive Date: 20050928
  Receipt Date: 20050913
  Transmission Date: 20060218
  Serious: Yes (Hospitalization, Other)
  Sender: FDA-Public Use
  Company Number: USA0509107496

PATIENT
  Age: 82 Year
  Sex: Female

DRUGS (10)
  1. FORTEO [Suspect]
     Indication: OSTEOPOROSIS
     Dosage: 20 UG/1 DAY
     Dates: start: 20040501
  2. COLAZAL (BALSALAZIDE SODIUM) [Concomitant]
  3. BLOOD PRESSURE MEDICATION [Concomitant]
  4. CALCIUM GLUCONATE [Concomitant]
  5. COZAAR [Concomitant]
  6. ACETYLSALICYLIC ACID SRT [Concomitant]
  7. LOPID [Concomitant]
  8. LASIX [Concomitant]
  9. LEXAPRO [Concomitant]
  10. AMITRIPTYLINE HCL [Concomitant]

REACTIONS (2)
  - FEMORAL NECK FRACTURE [None]
  - PHARMACEUTICAL PRODUCT COMPLAINT [None]
